FAERS Safety Report 8827228 (Version 1)
Quarter: 2012Q4

REPORT INFORMATION
  Report Type: 
  Country: US (occurrence: US)
  Receive Date: 20121008
  Receipt Date: 20121008
  Transmission Date: 20130627
  Serious: No
  Sender: FDA-Public Use
  Company Number: US-009507513-1210USA000313

PATIENT
  Sex: Male

DRUGS (1)
  1. JANUMET XR [Suspect]
     Indication: DIABETES MELLITUS
     Dosage: 2000mg/100mg, qd
     Route: 048
     Dates: end: 20120926

REACTIONS (1)
  - Feeling hot [Recovering/Resolving]
